FAERS Safety Report 6890910-8 (Version None)
Quarter: 2010Q3

REPORT INFORMATION
  Report Type: 
  Country: None (occurrence: None)
  Receive Date: 20100731
  Receipt Date: 20090407
  Transmission Date: 20110219
  Serious: No
  Sender: FDA-Public Use
  Company Number: US-PFIZER INC-2009161668

PATIENT
  Sex: Male
  Weight: 92.971 kg

DRUGS (8)
  1. LIPITOR [Suspect]
     Indication: BLOOD CHOLESTEROL INCREASED
     Dosage: 20 MG, 1X/DAY
     Dates: start: 20020101
  2. METOPROLOL TARTRATE [Suspect]
  3. PLAVIX [Concomitant]
     Dosage: UNK
  4. ISOSORBIDE [Concomitant]
     Dosage: UNK
  5. ACETYLSALICYLIC ACID [Concomitant]
     Dosage: UNK
  6. CARAFATE [Concomitant]
     Dosage: UNK
  7. REGLAN [Concomitant]
     Dosage: UNK
  8. VYTORIN [Concomitant]
     Dosage: UNK

REACTIONS (3)
  - MUSCULOSKELETAL STIFFNESS [None]
  - PAIN IN EXTREMITY [None]
  - PRURITUS [None]
